FAERS Safety Report 11643586 (Version 2)
Quarter: 2015Q4

REPORT INFORMATION
  Report Type: Not Available
  Country: IT (occurrence: IT)
  Receive Date: 20151020
  Receipt Date: 20151029
  Transmission Date: 20160304
  Serious: Yes (Other)
  Sender: FDA-Public Use
  Company Number: IT-MUNDIPHARMA DS AND PHARMACOVIGILANCE-GBR-2015-0031346

PATIENT
  Age: 40 Year
  Sex: Female

DRUGS (1)
  1. TARGIN COMPRESSA A RILASCIO PROLUNGATO CONTIENE 10MG/5MG [Suspect]
     Active Substance: NALOXONE HYDROCHLORIDE\OXYCODONE HYDROCHLORIDE
     Indication: ARTHRALGIA
     Dosage: 20 MG, DAILY
     Route: 048
     Dates: start: 20151004, end: 20151004

REACTIONS (6)
  - Urticaria [Unknown]
  - Malaise [Unknown]
  - Dry skin [Unknown]
  - Oral herpes [Unknown]
  - Vomiting [Unknown]
  - Hypoacusis [Unknown]

NARRATIVE: CASE EVENT DATE: 20151004
